FAERS Safety Report 25543867 (Version 1)
Quarter: 2025Q3

REPORT INFORMATION
  Report Type: Spontaneous
  Country: US (occurrence: US)
  Receive Date: 20250711
  Receipt Date: 20250711
  Transmission Date: 20251021
  Serious: No
  Sender: PFIZER
  Company Number: US-PFIZER INC-202500139493

PATIENT
  Age: 7 Decade
  Sex: Female

DRUGS (1)
  1. RITLECITINIB [Suspect]
     Active Substance: RITLECITINIB
     Dosage: 50 MG, DAILY
     Route: 048

REACTIONS (1)
  - Fatigue [Unknown]
